FAERS Safety Report 4660401-3 (Version None)
Quarter: 2005Q2

REPORT INFORMATION
  Report Type: 
  Country: None (occurrence: None)
  Receive Date: 20050512
  Receipt Date: 20050502
  Transmission Date: 20051028
  Serious: Yes (Hospitalization)
  Sender: FDA-Public Use
  Company Number: 200511527FR

PATIENT
  Age: 44 Year
  Sex: Male

DRUGS (7)
  1. LOVENOX [Suspect]
     Route: 058
     Dates: start: 20040618, end: 20040628
  2. ROFERON [Suspect]
     Indication: MALIGNANT HISTIOCYTOSIS
     Dates: start: 20040201, end: 20040619
  3. PREDNISONE [Concomitant]
     Route: 048
  4. LASILIX [Concomitant]
     Route: 048
  5. MOPRAL [Concomitant]
     Route: 048
  6. CALCIUM WITH VITAMIN D [Concomitant]
     Route: 048
  7. SOLU-MEDROL [Concomitant]

REACTIONS (4)
  - BLOOD ALBUMIN DECREASED [None]
  - PANCYTOPENIA [None]
  - RED BLOOD CELL SEDIMENTATION RATE INCREASED [None]
  - URINARY TRACT INFECTION [None]
